FAERS Safety Report 13093370 (Version 1)
Quarter: 2017Q1

REPORT INFORMATION
  Report Type: Spontaneous
  Country: ES (occurrence: ES)
  Receive Date: 20170106
  Receipt Date: 20170106
  Transmission Date: 20170428
  Serious: Yes (Death, Other)
  Sender: FDA-Public Use
  Company Number: ES-GLAXOSMITHKLINE-ES2016195366

PATIENT
  Age: 62 Year
  Sex: Male
  Weight: 57 kg

DRUGS (9)
  1. HALOPERIDOL. [Interacting]
     Active Substance: HALOPERIDOL
     Indication: SCHIZOPHRENIA
     Dosage: 5 MG, TID, 5MG 3 TIMES A DAY
     Route: 065
     Dates: start: 20141212
  2. RIVOTRIL [Interacting]
     Active Substance: CLONAZEPAM
     Indication: ANXIETY
     Dosage: 0, 5MG 4 TIMES A DAY
     Route: 065
     Dates: start: 20141114
  3. QUETIAPINE. [Interacting]
     Active Substance: QUETIAPINE
     Indication: SCHIZOPHRENIA
     Dosage: 400 MG, TID, 400MG 3 TIMES A DAY
     Route: 065
     Dates: start: 20141118
  4. TIOTROPIUM BROMIDE [Interacting]
     Active Substance: TIOTROPIUM BROMIDE
     Indication: CHRONIC OBSTRUCTIVE PULMONARY DISEASE
     Dosage: 2, 2 PULSE 5MCG A DAY
     Route: 065
     Dates: start: 20160422
  5. SERETIDE [Suspect]
     Active Substance: FLUTICASONE PROPIONATE\SALMETEROL XINAFOATE
     Indication: ASTHMA
     Dosage: 1 DF, BID, 2 INHALATIONS PER DAY
     Route: 065
     Dates: start: 20160425
  6. LEVOTIROXINA [Interacting]
     Active Substance: LEVOTHYROXINE SODIUM
     Indication: HYPOTHYROIDISM
     Dosage: 150 ?G, QD, 150MCG MORNING
     Route: 065
     Dates: start: 20141202
  7. METFORMIN [Interacting]
     Active Substance: METFORMIN HYDROCHLORIDE
     Indication: TYPE 2 DIABETES MELLITUS
     Dosage: 850 MG, BID, 850MG 2 TIMES A DAY
     Route: 065
     Dates: start: 20150121
  8. LORATADINE. [Interacting]
     Active Substance: LORATADINE
     Indication: RHINITIS ALLERGIC
     Dosage: 10 MG, QD, 10 MG/DAY
     Route: 065
     Dates: start: 20161121
  9. VALPROIC ACID. [Interacting]
     Active Substance: VALPROIC ACID
     Indication: EPILEPSY
     Dosage: 500 MG 3 TIMES TO THE DAY
     Route: 065
     Dates: start: 20150331

REACTIONS (4)
  - Drug interaction [Unknown]
  - Syncope [Fatal]
  - Ventricular fibrillation [Fatal]
  - Cardiac failure [Fatal]

NARRATIVE: CASE EVENT DATE: 20161122
